FAERS Safety Report 7391753-1 (Version None)
Quarter: 2011Q2

REPORT INFORMATION
  Report Type: 
  Country: None (occurrence: None)
  Receive Date: 20110404
  Receipt Date: 20110328
  Transmission Date: 20111010
  Serious: Yes (Hospitalization)
  Sender: FDA-Public Use
  Company Number: FR-ROCHE-655992

PATIENT
  Sex: Female
  Weight: 64 kg

DRUGS (6)
  1. BEVACIZUMAB [Suspect]
     Route: 042
     Dates: start: 20090810
  2. INTERFERON ALFA [Suspect]
     Dosage: DOSE: 9 MU
     Route: 058
     Dates: start: 20090810
  3. HYPERIUM [Concomitant]
  4. LEVOTHYROX [Concomitant]
     Indication: HYPOTHYROIDISM
  5. BEVACIZUMAB [Suspect]
     Dosage: DOSE DECREASED
     Route: 042
  6. LOXEN [Concomitant]

REACTIONS (3)
  - URINARY TRACT INFECTION [None]
  - GENERAL PHYSICAL HEALTH DETERIORATION [None]
  - HYPERKALAEMIA [None]
